FAERS Safety Report 8386735-7 (Version None)
Quarter: 2012Q2

REPORT INFORMATION
  Report Type: 
  Country: None (occurrence: None)
  Receive Date: 20120525
  Receipt Date: 20120510
  Transmission Date: 20120825
  Serious: Yes (Hospitalization, Other)
  Sender: FDA-Public Use
  Company Number: US-BAYER-2012-046877

PATIENT
  Sex: Female

DRUGS (3)
  1. YASMIN [Suspect]
  2. YAZ [Suspect]
     Dosage: UNK
     Dates: start: 20090318, end: 20090609
  3. DROSPIRENONE AND ETHINYL ESTRADIOL [Suspect]
     Dosage: UNK
     Dates: start: 20090609

REACTIONS (5)
  - PAIN [None]
  - ANHEDONIA [None]
  - PULMONARY EMBOLISM [None]
  - INJURY [None]
  - ANXIETY [None]
